FAERS Safety Report 11044439 (Version 1)
Quarter: 2015Q2

REPORT INFORMATION
  Report Type: Spontaneous
  Country: US (occurrence: US)
  Receive Date: 20150417
  Receipt Date: 20150417
  Transmission Date: 20150821
  Serious: No
  Sender: FDA-Public Use
  Company Number: US-PFIZER INC-2015128148

PATIENT
  Sex: Female

DRUGS (2)
  1. XANAX [Suspect]
     Active Substance: ALPRAZOLAM
     Dosage: UNK
  2. ALPRAZOLAM. [Suspect]
     Active Substance: ALPRAZOLAM
     Dosage: UNK

REACTIONS (14)
  - Irritable bowel syndrome [Unknown]
  - Muscle disorder [Unknown]
  - Malaise [Unknown]
  - Anxiety [Unknown]
  - Hyperhidrosis [Unknown]
  - Nausea [Unknown]
  - Palpitations [Unknown]
  - Constipation [Unknown]
  - Emotional disorder [Unknown]
  - Irritability [Unknown]
  - Headache [Unknown]
  - Heart rate increased [Unknown]
  - Hypertension [Unknown]
  - Abdominal pain upper [Unknown]
